FAERS Safety Report 20952281 (Version 1)
Quarter: 2022Q2

REPORT INFORMATION
  Report Type: Spontaneous
  Country: US (occurrence: None)
  Receive Date: 20220612
  Receipt Date: 20220612
  Transmission Date: 20220721
  Serious: Yes (Other)
  Sender: FDA-Public Use
  Company Number: None

PATIENT
  Age: 31 Year
  Sex: Female
  Weight: 63.5 kg

DRUGS (3)
  1. LILETTA [Suspect]
     Active Substance: LEVONORGESTREL
     Dates: start: 20220416
  2. LEXAPRO [Concomitant]
     Active Substance: ESCITALOPRAM OXALATE
  3. ALLEGRA [Concomitant]
     Active Substance: FEXOFENADINE HYDROCHLORIDE

REACTIONS (3)
  - Device dislocation [None]
  - Device expulsion [None]
  - Ovarian cyst [None]
